FAERS Safety Report 5951971-3 (Version None)
Quarter: 2008Q4

REPORT INFORMATION
  Report Type: 
  Country: None (occurrence: None)
  Receive Date: 20081113
  Receipt Date: 20071010
  Transmission Date: 20090506
  Serious: No
  Sender: FDA-Public Use
  Company Number: A0686940A

PATIENT
  Age: 62 Year
  Sex: Male

DRUGS (10)
  1. CARVEDILOL [Suspect]
     Indication: HYPERTENSION
     Dosage: 50MG TWICE PER DAY
     Route: 048
     Dates: start: 20071008
  2. LEXAPRO [Concomitant]
  3. AMLOPIN [Concomitant]
  4. LIPITOR [Concomitant]
  5. ALLOPURINOL [Concomitant]
  6. PREVACID [Concomitant]
  7. HYZAAR [Concomitant]
  8. INDOMETHACIN [Concomitant]
  9. VICODIN [Concomitant]
  10. LORAZEPAM [Concomitant]

REACTIONS (2)
  - DRUG INEFFECTIVE [None]
  - PALPITATIONS [None]
